FAERS Safety Report 8440162-2 (Version None)
Quarter: 2012Q2

REPORT INFORMATION
  Report Type: 
  Country: None (occurrence: None)
  Receive Date: 20120615
  Receipt Date: 20120531
  Transmission Date: 20120825
  Serious: Yes (Hospitalization, Other)
  Sender: FDA-Public Use
  Company Number: JP-ROCHE-1056542

PATIENT
  Sex: Male

DRUGS (6)
  1. COPEGUS [Suspect]
     Indication: HEPATIC CIRRHOSIS
     Route: 048
     Dates: start: 20111005, end: 20111130
  2. URSO 250 [Concomitant]
     Indication: HEPATIC CIRRHOSIS
     Route: 048
  3. MAGMITT [Concomitant]
     Route: 048
  4. AMOBAN [Concomitant]
     Route: 048
  5. OMEPRAZOLE [Concomitant]
     Route: 048
     Dates: start: 20111130
  6. PEGASYS [Suspect]
     Indication: HEPATIC CIRRHOSIS
     Route: 058
     Dates: start: 20111005, end: 20111116

REACTIONS (9)
  - HYPOAESTHESIA [None]
  - MUSCULAR WEAKNESS [None]
  - GASTRITIS [None]
  - HAEMOGLOBIN DECREASED [None]
  - ARTHRALGIA [None]
  - CELLULITIS [None]
  - NO THERAPEUTIC RESPONSE [None]
  - WHITE BLOOD CELL COUNT DECREASED [None]
  - PLATELET COUNT DECREASED [None]
